FAERS Safety Report 4293108-5 (Version None)
Quarter: 2004Q1

REPORT INFORMATION
  Report Type: 
  Country: None (occurrence: None)
  Receive Date: 20040212
  Receipt Date: 20030108
  Transmission Date: 20041129
  Serious: Yes (Other)
  Sender: FDA-Public Use
  Company Number: US-GLAXOSMITHKLINE-A0391825A

PATIENT
  Age: 42 Year
  Sex: Female

DRUGS (9)
  1. PAXIL [Suspect]
     Indication: DEPRESSION
     Route: 048
     Dates: start: 19941006
  2. LIPITOR [Concomitant]
  3. ATENOLOL [Concomitant]
  4. DAYPRO [Concomitant]
  5. NITROGLYCERIN [Concomitant]
  6. SKELAXIN [Concomitant]
  7. VICOPROFEN [Concomitant]
  8. ISMO [Concomitant]
     Dosage: 20MG TWICE PER DAY
     Route: 048
     Dates: start: 19950420
  9. NIACIN [Concomitant]
     Route: 048

REACTIONS (4)
  - ADVERSE EVENT [None]
  - DEPENDENCE [None]
  - DRUG INEFFECTIVE [None]
  - DRUG WITHDRAWAL SYNDROME [None]
